FAERS Safety Report 13019950 (Version 1)
Quarter: 2016Q4

REPORT INFORMATION
  Report Type: Spontaneous
  Country: US (occurrence: US)
  Receive Date: 20161212
  Receipt Date: 20161212
  Transmission Date: 20170207
  Serious: No
  Sender: FDA-Public Use
  Company Number: US-ROCHE-1834045

PATIENT
  Sex: Female
  Weight: 113.5 kg

DRUGS (25)
  1. PHAZYME [Concomitant]
     Active Substance: DIMETHICONE 410
  2. VERAPAMIL [Concomitant]
     Active Substance: VERAPAMIL HYDROCHLORIDE
  3. XOPENEX [Concomitant]
     Active Substance: LEVALBUTEROL HYDROCHLORIDE
  4. XELJANZ [Concomitant]
     Active Substance: TOFACITINIB CITRATE
     Indication: RHEUMATOID ARTHRITIS
     Dosage: TAKE ONE TABLE BY MOUTH TWICE DAILY
     Route: 065
  5. IRBESARTAN. [Concomitant]
     Active Substance: IRBESARTAN
  6. SINGULAIR [Concomitant]
     Active Substance: MONTELUKAST SODIUM
  7. SYNTHROID [Concomitant]
     Active Substance: LEVOTHYROXINE SODIUM
  8. ADVAIR HFA [Concomitant]
     Active Substance: FLUTICASONE PROPIONATE\SALMETEROL XINAFOATE
  9. PHENERGAN (UNITED STATES) [Concomitant]
  10. LIDODERM [Concomitant]
     Active Substance: LIDOCAINE
  11. TRILEPTAL [Concomitant]
     Active Substance: OXCARBAZEPINE
  12. RESTORIL [Concomitant]
     Active Substance: TEMAZEPAM
  13. PLAQUENIL [Concomitant]
     Active Substance: HYDROXYCHLOROQUINE SULFATE
  14. RESTASIS [Concomitant]
     Active Substance: CYCLOSPORINE
  15. NASONEX [Concomitant]
     Active Substance: MOMETASONE FUROATE
  16. LOESTRIN NOS [Concomitant]
     Active Substance: ETHINYL ESTRADIOL\NORETHINDRONE ACETATE
  17. XANAX [Concomitant]
     Active Substance: ALPRAZOLAM
  18. FIORINAL (UNITED STATES) [Concomitant]
  19. VOLTAREN [Concomitant]
     Active Substance: DICLOFENAC SODIUM
  20. PREDNISONE. [Concomitant]
     Active Substance: PREDNISONE
  21. ZYRTEC [Concomitant]
     Active Substance: CETIRIZINE HYDROCHLORIDE
  22. BENADRYL [Concomitant]
     Active Substance: DIPHENHYDRAMINE HYDROCHLORIDE
  23. METOPROLOL. [Concomitant]
     Active Substance: METOPROLOL
  24. ACTEMRA [Suspect]
     Active Substance: TOCILIZUMAB
     Indication: PRODUCT USED FOR UNKNOWN INDICATION
     Route: 065
  25. CYMBALTA [Concomitant]
     Active Substance: DULOXETINE HYDROCHLORIDE

REACTIONS (1)
  - Hypersensitivity [Unknown]
